FAERS Safety Report 5510332-1 (Version None)
Quarter: 2007Q4

REPORT INFORMATION
  Report Type: 
  Country: None (occurrence: None)
  Receive Date: 20071108
  Receipt Date: 20071027
  Transmission Date: 20080405
  Serious: Yes (Other)
  Sender: FDA-Public Use
  Company Number: US-PFIZER INC-2007090953

PATIENT
  Sex: Female
  Weight: 77.1 kg

DRUGS (9)
  1. XANAX [Suspect]
     Indication: PANIC ATTACK
  2. XANAX [Suspect]
     Indication: BIPOLAR DISORDER
  3. LITHIUM CARBONATE [Suspect]
  4. MAGNESIUM SULFATE [Concomitant]
  5. LAMICTAL [Concomitant]
  6. VITAMIN B-12 [Concomitant]
  7. NEURONTIN [Concomitant]
  8. VALIUM [Concomitant]
  9. PAXIL [Concomitant]

REACTIONS (2)
  - MANIA [None]
  - THERAPEUTIC AGENT TOXICITY [None]
